FAERS Safety Report 6148066-5 (Version None)
Quarter: 2009Q2

REPORT INFORMATION
  Report Type: 
  Country: None (occurrence: None)
  Receive Date: 20090408
  Receipt Date: 20090403
  Transmission Date: 20091009
  Serious: Yes (Other)
  Sender: FDA-Public Use
  Company Number: B0561989A

PATIENT
  Sex: Male

DRUGS (10)
  1. PAXIL [Suspect]
     Indication: DEPRESSION
     Dosage: 30MG PER DAY
     Route: 048
     Dates: start: 20081014
  2. ZOLOFT [Concomitant]
     Indication: DEPRESSION
     Dosage: 50MG PER DAY
     Route: 048
     Dates: start: 20081104, end: 20090119
  3. SEROQUEL [Concomitant]
     Indication: DELUSION
     Dosage: 75MG TWICE PER DAY
     Route: 048
     Dates: start: 20081104, end: 20090119
  4. RISPERDAL [Concomitant]
     Indication: DELUSION
     Dosage: 1MG PER DAY
     Route: 048
     Dates: start: 20081014, end: 20090119
  5. ETISEDAN [Concomitant]
     Indication: ANXIETY
     Dosage: 2MG PER DAY
     Route: 048
     Dates: start: 20081014, end: 20090119
  6. GOODMIN [Concomitant]
     Indication: INSOMNIA
     Dosage: .25MG PER DAY
     Route: 048
     Dates: start: 20081018, end: 20090119
  7. SEROQUEL [Concomitant]
     Dosage: 50MG PER DAY
     Route: 048
     Dates: start: 20081120
  8. ETISEDAN [Concomitant]
     Dosage: 3MG PER DAY
     Route: 048
     Dates: start: 20081020
  9. GOODMIN [Concomitant]
     Dosage: .125MG PER DAY
     Route: 048
     Dates: start: 20081020, end: 20081211
  10. ROHYPNOL [Concomitant]
     Route: 048
     Dates: start: 20081205

REACTIONS (2)
  - ABNORMAL BEHAVIOUR [None]
  - THEFT [None]
